FAERS Safety Report 25820356 (Version 1)
Quarter: 2025Q3

REPORT INFORMATION
  Report Type: Spontaneous
  Country: US (occurrence: US)
  Receive Date: 20250919
  Receipt Date: 20250919
  Transmission Date: 20251021
  Serious: Yes (Death, Hospitalization)
  Sender: ANI
  Company Number: US-ANIPHARMA-030565

PATIENT
  Age: 73 Year
  Sex: Male
  Weight: 108.9 kg

DRUGS (3)
  1. ETODOLAC [Suspect]
     Active Substance: ETODOLAC
     Indication: Analgesic therapy
     Route: 048
     Dates: start: 20240905
  2. PLAVIX [Concomitant]
     Active Substance: CLOPIDOGREL BISULFATE
     Indication: Product used for unknown indication
  3. ASPIRIN [Concomitant]
     Active Substance: ASPIRIN
     Indication: Product used for unknown indication

REACTIONS (7)
  - Muscular weakness [Fatal]
  - Dyspnoea [Fatal]
  - Gait disturbance [Fatal]
  - Dysarthria [Fatal]
  - Mental status changes [Fatal]
  - Pain [Fatal]
  - Product prescribing error [Fatal]

NARRATIVE: CASE EVENT DATE: 20240906
